FAERS Safety Report 16238876 (Version 1)
Quarter: 2019Q2

REPORT INFORMATION
  Report Type: Spontaneous
  Country: US (occurrence: US)
  Receive Date: 20190424
  Receipt Date: 20190424
  Transmission Date: 20190711
  Serious: Yes (Disabling)
  Sender: FDA-Public Use
  Company Number: None

PATIENT
  Age: 94 Year
  Sex: Female
  Weight: 66.6 kg

DRUGS (8)
  1. LOSARTAN. [Concomitant]
     Active Substance: LOSARTAN
  2. LEVOTHYROXINE. [Concomitant]
     Active Substance: LEVOTHYROXINE
  3. BABY ASPIRIN [Concomitant]
     Active Substance: ASPIRIN
  4. TROSPIUM [Suspect]
     Active Substance: TROSPIUM
     Indication: URINARY INCONTINENCE
     Dosage: ?          QUANTITY:1 CAPSULE(S);?
     Route: 048
     Dates: start: 20190101, end: 20190118
  5. METOPROLOL. [Concomitant]
     Active Substance: METOPROLOL
  6. TOLTERIDINE [Concomitant]
  7. AMLODIPINE [Concomitant]
     Active Substance: AMLODIPINE BESYLATE
  8. LATANOPROST. [Concomitant]
     Active Substance: LATANOPROST

REACTIONS (1)
  - Hallucination [None]

NARRATIVE: CASE EVENT DATE: 20190119
